FAERS Safety Report 6311355-5 (Version None)
Quarter: 2009Q3

REPORT INFORMATION
  Report Type: 
  Country: None (occurrence: None)
  Receive Date: 20090813
  Receipt Date: 20090730
  Transmission Date: 20100115
  Serious: Yes (Death, Other)
  Sender: FDA-Public Use
  Company Number: THYM-1000997

PATIENT
  Age: 60 Year
  Sex: Male
  Weight: 58 kg

DRUGS (21)
  1. THYMOGLOBULIN [Suspect]
     Indication: APLASTIC ANAEMIA
     Dosage: 125 MG, QD, INTRAVENOUS
     Route: 042
     Dates: start: 20090223, end: 20090227
  2. CYCLOSPORINE [Suspect]
     Indication: APLASTIC ANAEMIA
     Dosage: 200 MG,
     Dates: start: 20090223
  3. AMPHOTERICIN B [Suspect]
     Indication: DRUG USE FOR UNKNOWN INDICATION
     Dosage: 100 MG,
     Dates: start: 20090311, end: 20090317
  4. VORICONAZOLE [Suspect]
     Indication: ASPERGILLOSIS
     Dosage: ORAL
     Route: 048
     Dates: start: 20090307, end: 20090311
  5. METHYLPREDNISOLONE [Concomitant]
  6. FILGRASTIM (GENETICAL RECOMBINATION) (FILGRASTIM (GENETICAL RECOMBINAT [Concomitant]
  7. LACTATED RINGER'S (CALCIUM CHLORIDE DIHYDRATE, POTASSIUM CHLORIDE, SOD [Concomitant]
  8. DORIPENEM HYDRATE (DORIPENEM HYDRATE) [Concomitant]
  9. METHYLPREDNISOLONE [Concomitant]
  10. FUROSEMIDE (FUROSEMIDE SODIUM) [Concomitant]
  11. MAINTENANCE MEDIUM (MAINTENANCE SODIUM) [Concomitant]
  12. INSULIN HUMAN (GENETICAL RECOMBINATION) (INSULIN HUMAN (GENETICAL RECO [Concomitant]
  13. CHLORPHENIRAMINE MALEATE [Concomitant]
  14. MIXED AMINO ACID_CARBOHYDRATE_ELECTROLYTE_VITAMIN COMBINE (MIXED AMINO [Concomitant]
  15. SOYBEAN OIL (SOYBEAN OIL) [Concomitant]
  16. DOPAMINE HCL [Concomitant]
  17. HUMAN ANTITHROMBIN 3 CONCENTRATED [Concomitant]
  18. MENATETRENONE (MENATETRENONE) [Concomitant]
  19. CARBAZOCHROME SODIUM SULFONATE (CARBAZOCHROME SODIUM SULFONATE) [Concomitant]
  20. LENOGRASTIM (GENETICAL RECOMBINATION) [Concomitant]
  21. MANGANESE CHLORIDE_ZINC SULFATE COMBINED DRUG (MANGANESE CHLORIDE_ZINC [Concomitant]

REACTIONS (15)
  - APLASTIC ANAEMIA [None]
  - ASPERGILLOSIS [None]
  - BLOOD PRESSURE DECREASED [None]
  - CONDITION AGGRAVATED [None]
  - DIARRHOEA [None]
  - DISEASE PROGRESSION [None]
  - HAEMORRHAGE SUBCUTANEOUS [None]
  - HAEMORRHAGIC DIATHESIS [None]
  - HALLUCINATION [None]
  - HYPOTENSION [None]
  - PNEUMONIA [None]
  - PYREXIA [None]
  - RESPIRATORY DISORDER [None]
  - RETICULOCYTE COUNT DECREASED [None]
  - SEPSIS [None]
